FAERS Safety Report 6919835-6 (Version None)
Quarter: 2010Q3

REPORT INFORMATION
  Report Type: 
  Country: None (occurrence: None)
  Receive Date: 20100811
  Receipt Date: 20100806
  Transmission Date: 20110219
  Serious: No
  Sender: FDA-Public Use
  Company Number: US-ROXANE LABORATORIES, INC.-2010-RO-00830RO

PATIENT
  Sex: Female

DRUGS (1)
  1. MERCAPTOPURINE [Suspect]

REACTIONS (2)
  - MUSCLE SPASMS [None]
  - PRODUCT COLOUR ISSUE [None]
